FAERS Safety Report 7643938-4 (Version None)
Quarter: 2011Q3

REPORT INFORMATION
  Report Type: 
  Country: None (occurrence: None)
  Receive Date: 20110729
  Receipt Date: 20101220
  Transmission Date: 20111222
  Serious: No
  Sender: FDA-Public Use
  Company Number: US-GLAXOSMITHKLINE-A0726560A

PATIENT
  Age: 78 Year
  Sex: Female

DRUGS (6)
  1. VITAMIN E [Concomitant]
  2. PRILOSEC [Concomitant]
  3. ADVAIR DISKUS 100/50 [Suspect]
     Indication: PRODUCT USED FOR UNKNOWN INDICATION
     Route: 055
  4. ALLEGRA [Concomitant]
  5. SINGULAIR [Concomitant]
  6. DYAZIDE [Suspect]
     Indication: HYPERTENSION
     Dosage: 37.5MG PER DAY
     Route: 048
     Dates: start: 19780101

REACTIONS (4)
  - ILL-DEFINED DISORDER [None]
  - COUGH [None]
  - NAUSEA [None]
  - APHONIA [None]
